FAERS Safety Report 14989421 (Version 3)
Quarter: 2018Q4

REPORT INFORMATION
  Report Type: Report from Study
  Country: JP (occurrence: JP)
  Receive Date: 20180608
  Receipt Date: 20181218
  Transmission Date: 20190204
  Serious: Yes (Death)
  Sender: FDA-Public Use
  Company Number: JP-ACTELION-A-CH2018-170439

PATIENT
  Age: 37 Year
  Sex: Female
  Weight: 48.7 kg

DRUGS (7)
  1. OXYCONTIN [Concomitant]
     Active Substance: OXYCODONE HYDROCHLORIDE
     Indication: BREAST CANCER
     Dosage: 5 MG, UNK
     Dates: start: 20171130
  2. PACLITAXEL. [Concomitant]
     Active Substance: PACLITAXEL
     Indication: BREAST CANCER
     Dosage: 130 MG, UNK
     Dates: start: 20171207
  3. UPTRAVI [Suspect]
     Active Substance: SELEXIPAG
     Indication: PULMONARY TUMOUR THROMBOTIC MICROANGIOPATHY
     Dosage: 0.4 MG, BID
     Route: 048
     Dates: start: 20171207, end: 20180205
  4. AVASTIN [Concomitant]
     Active Substance: BEVACIZUMAB
     Indication: BREAST CANCER
     Dosage: 480 MG, UNK
     Dates: start: 20171207
  5. GRANISETRON [Concomitant]
     Active Substance: GRANISETRON
     Indication: BREAST CANCER
     Dosage: 3 MG, QD
     Dates: start: 20171207
  6. UPTRAVI [Suspect]
     Active Substance: SELEXIPAG
     Dosage: 0.2 MG, BID
     Route: 048
     Dates: start: 20171201, end: 20171206
  7. PARIET [Concomitant]
     Active Substance: RABEPRAZOLE SODIUM
     Dosage: 10 MG, QD
     Dates: start: 20171205

REACTIONS (2)
  - Headache [Fatal]
  - Metastases to meninges [Fatal]

NARRATIVE: CASE EVENT DATE: 20180201
